FAERS Safety Report 16097168 (Version 2)
Quarter: 2020Q2

REPORT INFORMATION
  Report Type: Spontaneous
  Country: US (occurrence: US)
  Receive Date: 20190320
  Receipt Date: 20200511
  Transmission Date: 20200713
  Serious: No
  Sender: FDA-Public Use
  Company Number: US-ELI_LILLY_AND_COMPANY-US201903002038

PATIENT
  Age: 72 Year
  Sex: Male

DRUGS (1)
  1. TALTZ [Suspect]
     Active Substance: IXEKIZUMAB
     Indication: PSORIASIS
     Dosage: UNK, UNKNOWN
     Route: 065
     Dates: start: 201709

REACTIONS (4)
  - Therapeutic response delayed [Unknown]
  - Pruritus [Not Recovered/Not Resolved]
  - Psoriasis [Not Recovered/Not Resolved]
  - Haemorrhage [Not Recovered/Not Resolved]

NARRATIVE: CASE EVENT DATE: 201812
